FAERS Safety Report 9854249 (Version 1)
Quarter: 2014Q1

REPORT INFORMATION
  Report Type: Spontaneous
  Country: US (occurrence: US)
  Receive Date: 20140130
  Receipt Date: 20140130
  Transmission Date: 20141002
  Serious: No
  Sender: FDA-Public Use
  Company Number: US-009507513-1401USA013806

PATIENT
  Sex: 0

DRUGS (3)
  1. JANUVIA [Suspect]
     Route: 048
  2. NOVOLOG [Suspect]
     Dosage: FLEXPEN
  3. ACTOS [Suspect]

REACTIONS (3)
  - Tremor [Not Recovered/Not Resolved]
  - Nausea [Not Recovered/Not Resolved]
  - Vomiting [Not Recovered/Not Resolved]
